FAERS Safety Report 23447918 (Version 4)
Quarter: 2025Q1

REPORT INFORMATION
  Report Type: Spontaneous
  Country: US (occurrence: US)
  Receive Date: 20240126
  Receipt Date: 20250220
  Transmission Date: 20250409
  Serious: Yes (Death, Hospitalization)
  Sender: NOVARTIS
  Company Number: US-002147023-NVSC2024US015414

PATIENT
  Sex: Female
  Weight: 80.3 kg

DRUGS (2)
  1. MEKINIST [Suspect]
     Active Substance: TRAMETINIB DIMETHYL SULFOXIDE
     Indication: Ovarian cancer
     Dosage: 1.5 MG, QD
     Route: 048
     Dates: start: 202311
  2. OTEZLA [Concomitant]
     Active Substance: APREMILAST
     Indication: Product used for unknown indication
     Route: 065

REACTIONS (5)
  - Ovarian cancer [Fatal]
  - Malignant neoplasm progression [Fatal]
  - Nausea [Unknown]
  - Dizziness [Unknown]
  - Product use in unapproved indication [Unknown]
